FAERS Safety Report 10009797 (Version 1)
Quarter: 2014Q1

REPORT INFORMATION
  Report Type: Spontaneous
  Country: US (occurrence: US)
  Receive Date: 20140312
  Receipt Date: 20140312
  Transmission Date: 20141002
  Serious: No
  Sender: FDA-Public Use
  Company Number: US-INCYTE CORPORATION-2012IN002584

PATIENT
  Age: 52 Year
  Sex: Male

DRUGS (3)
  1. JAKAFI [Suspect]
     Indication: MYELOFIBROSIS
     Dosage: 20 MG, BID
     Route: 048
     Dates: start: 201201
  2. DILTIAZEM [Interacting]
     Dosage: UNK UNK, UNK
     Dates: start: 201211
  3. PEGASYS [Concomitant]

REACTIONS (2)
  - Platelet count decreased [Unknown]
  - Drug interaction [Unknown]
